FAERS Safety Report 6181288-6 (Version None)
Quarter: 2009Q2

REPORT INFORMATION
  Report Type: 
  Country: None (occurrence: None)
  Receive Date: 20090506
  Receipt Date: 20090310
  Transmission Date: 20091009
  Serious: No
  Sender: FDA-Public Use
  Company Number: US-BAYER-200916489NA

PATIENT
  Age: 62 Year
  Sex: Female
  Weight: 88 kg

DRUGS (2)
  1. MAGNEVIST [Suspect]
     Indication: NUCLEAR MAGNETIC RESONANCE IMAGING
     Route: 042
     Dates: start: 20080404, end: 20080404
  2. HYDROCHLOROTHIAZIDE [Concomitant]

REACTIONS (4)
  - EYE SWELLING [None]
  - PRURITUS [None]
  - RASH MACULAR [None]
  - SWELLING FACE [None]
